FAERS Safety Report 9463887 (Version 1)
Quarter: 2013Q3

REPORT INFORMATION
  Report Type: Spontaneous
  Country: US (occurrence: US)
  Receive Date: 20130819
  Receipt Date: 20130819
  Transmission Date: 20140515
  Serious: Yes (Other)
  Sender: FDA-Public Use
  Company Number: US-JNJFOC-20130806274

PATIENT
  Age: 55 Year
  Sex: Female

DRUGS (2)
  1. REMICADE [Suspect]
     Indication: PSORIATIC ARTHROPATHY
     Dosage: 7-8 MG/KG
     Route: 042
  2. IMURAN [Concomitant]
     Dosage: STRENGTH: 50 MG
     Route: 048

REACTIONS (2)
  - Ovarian cancer [Unknown]
  - Cervix carcinoma [Unknown]
